FAERS Safety Report 17415286 (Version 3)
Quarter: 2021Q2

REPORT INFORMATION
  Report Type: Spontaneous
  Country: US (occurrence: US)
  Receive Date: 20200213
  Receipt Date: 20210518
  Transmission Date: 20210716
  Serious: Yes (Other)
  Sender: FDA-Public Use
  Company Number: US-PFIZER INC-2020064630

PATIENT
  Age: 83 Year
  Sex: Female

DRUGS (1)
  1. IBRANCE [Suspect]
     Active Substance: PALBOCICLIB
     Indication: BREAST CANCER FEMALE
     Dosage: 125 MG, UNK

REACTIONS (3)
  - Blindness unilateral [Unknown]
  - Attention deficit hyperactivity disorder [Unknown]
  - Cataract [Unknown]
